FAERS Safety Report 21183384 (Version 1)
Quarter: 2022Q3

REPORT INFORMATION
  Report Type: Spontaneous
  Country: ET (occurrence: ET)
  Receive Date: 20220808
  Receipt Date: 20220808
  Transmission Date: 20221027
  Serious: Yes (Other)
  Sender: FDA-Public Use
  Company Number: ET-NOVARTISPH-NVSC2022ET178108

PATIENT
  Sex: Male

DRUGS (1)
  1. GLIVEC [Suspect]
     Active Substance: IMATINIB MESYLATE
     Indication: Chronic myeloid leukaemia
     Dosage: 600 MG (6 X 100MG TABLETS)
     Route: 065

REACTIONS (5)
  - Gangrene [Unknown]
  - Cerebrovascular accident [Unknown]
  - HIV infection [Unknown]
  - Peripheral arterial occlusive disease [Unknown]
  - Therapy non-responder [Unknown]
